FAERS Safety Report 22207688 (Version 6)
Quarter: 2023Q2

REPORT INFORMATION
  Report Type: Spontaneous
  Country: US (occurrence: US)
  Receive Date: 20230413
  Receipt Date: 20230621
  Transmission Date: 20230721
  Serious: No
  Sender: FDA-Public Use
  Company Number: US-PFIZER INC-PV202300062352

PATIENT
  Age: 10 Year
  Sex: Male

DRUGS (2)
  1. GENOTROPIN [Suspect]
     Active Substance: SOMATROPIN
     Dosage: 1.4 MG, ALTERNATE DAY (ALTERNATE 1.4MG AND 1.3MG 6 DAYS A WEEK)
  2. GENOTROPIN [Suspect]
     Active Substance: SOMATROPIN
     Dosage: 1.3 MG, ALTERNATE DAY (ALTERNATE 1.4MG AND 1.3MG 6 DAYS A WEEK)

REACTIONS (4)
  - Poor quality device used [Unknown]
  - Drug dose omission by device [Unknown]
  - Device defective [Unknown]
  - Device breakage [Unknown]
